FAERS Safety Report 14014743 (Version 1)
Quarter: 2017Q3

REPORT INFORMATION
  Report Type: Spontaneous
  Country: US (occurrence: None)
  Receive Date: 20170927
  Receipt Date: 20170927
  Transmission Date: 20171128
  Serious: Yes (Disabling)
  Sender: FDA-Public Use
  Company Number: None

PATIENT
  Age: 32 Year
  Sex: Female
  Weight: 74.84 kg

DRUGS (12)
  1. FLONASE [Concomitant]
     Active Substance: FLUTICASONE PROPIONATE
  2. MULTI-VITAMIN [Concomitant]
     Active Substance: .ALPHA.-TOCOPHEROL ACETATE, DL-\ASCORBIC ACID\CYANOCOBALAMIN\FLUORIDE ION\FOLIC ACID\NIACIN\PYRIDOXINE\RIBOFLAVIN\THIAMINE\VITAMIN A\VITAMIN D
  3. IRON [Concomitant]
     Active Substance: IRON
  4. ACETAMINOPHEN. [Concomitant]
     Active Substance: ACETAMINOPHEN
  5. PARAGARD T 380A [Suspect]
     Active Substance: COPPER
  6. OMEGA 369 OIL [Concomitant]
  7. GINKGO [Concomitant]
     Active Substance: GINKGO
  8. SUDAFED [Concomitant]
     Active Substance: PSEUDOEPHEDRINE HYDROCHLORIDE
  9. GINSENG [Concomitant]
     Active Substance: ASIAN GINSENG
  10. EXCEDRIN [Concomitant]
     Active Substance: ACETAMINOPHEN\ASPIRIN\CAFFEINE
  11. ZYRTEC [Concomitant]
     Active Substance: CETIRIZINE HYDROCHLORIDE
  12. HORSECHESTNUT EXTRACT [Concomitant]

REACTIONS (4)
  - Vision blurred [None]
  - Loss of personal independence in daily activities [None]
  - Confusional state [None]
  - Heart rate increased [None]

NARRATIVE: CASE EVENT DATE: 20160720
